FAERS Safety Report 4587914-7 (Version None)
Quarter: 2005Q1

REPORT INFORMATION
  Report Type: 
  Country: None (occurrence: None)
  Receive Date: 20050219
  Receipt Date: 20041123
  Transmission Date: 20050727
  Serious: Yes (Other)
  Sender: FDA-Public Use
  Company Number: PHEH2004US12637

PATIENT
  Age: 64 Year
  Sex: Male
  Weight: 113 kg

DRUGS (3)
  1. CARDIZEM [Concomitant]
     Indication: HYPERTENSION
     Dates: start: 20010101, end: 20010101
  2. ACE INHIBITOR NOS [Suspect]
     Dates: start: 20010101, end: 20010101
  3. LOPRESSOR [Suspect]
     Indication: HYPERTENSION
     Dosage: UNK, QD
     Dates: start: 20010501

REACTIONS (5)
  - ABNORMAL DREAMS [None]
  - COUGH [None]
  - HALLUCINATION [None]
  - IMPAIRED DRIVING ABILITY [None]
  - SUICIDAL IDEATION [None]
